FAERS Safety Report 5625237-5 (Version None)
Quarter: 2008Q1

REPORT INFORMATION
  Report Type: 
  Country: None (occurrence: None)
  Receive Date: 20080208
  Receipt Date: 20080128
  Transmission Date: 20080703
  Serious: Yes (Death, Hospitalization)
  Sender: FDA-Public Use
  Company Number: 2008-00163

PATIENT
  Age: 56 Year
  Sex: Female
  Weight: 54 kg

DRUGS (9)
  1. VELCADE [Suspect]
     Indication: MULTIPLE MYELOMA
     Dosage: 1.94 MG, INTRAVENOUS
     Route: 042
     Dates: start: 20071210
  2. DEXAMETHASONE TAB [Concomitant]
  3. ALPRAZOLAM [Concomitant]
  4. ZOLEDRONIC ACID [Concomitant]
  5. CALCIUM (CALCIUM) [Concomitant]
  6. OMEPRAZOLE [Concomitant]
  7. PAROXETINE HCL [Concomitant]
  8. ESCITALOPRAM OXALATE [Concomitant]
  9. ERYTHROPOIETIN (ERYTHROPOIETIN) [Concomitant]

REACTIONS (4)
  - PERICARDIAL EFFUSION [None]
  - PNEUMONIA [None]
  - PULMONARY EMBOLISM [None]
  - SEPTIC SHOCK [None]
